FAERS Safety Report 8443444-3 (Version None)
Quarter: 2012Q2

REPORT INFORMATION
  Report Type: 
  Country: None (occurrence: None)
  Receive Date: 20120612
  Receipt Date: 20120612
  Transmission Date: 20120825
  Serious: No
  Sender: FDA-Public Use
  Company Number: None

PATIENT

DRUGS (2)
  1. HYDRALAZINE HCL [Suspect]
     Dosage: SINGLE DOSE VIAL 1 ML
  2. METHYLERGONOVINE MALEATE [Suspect]
     Dosage: INJECTION SINGLE DOSE VIAL 1 ML

REACTIONS (3)
  - INCORRECT STORAGE OF DRUG [None]
  - CIRCUMSTANCE OR INFORMATION CAPABLE OF LEADING TO MEDICATION ERROR [None]
  - MEDICATION ERROR [None]
